FAERS Safety Report 5914945-4 (Version None)
Quarter: 2008Q4

REPORT INFORMATION
  Report Type: 
  Country: None (occurrence: None)
  Receive Date: 20081010
  Receipt Date: 20081003
  Transmission Date: 20090506
  Serious: Yes (Life-Threatening, Hospitalization)
  Sender: FDA-Public Use
  Company Number: DK-AVENTIS-200819163GDDC

PATIENT
  Age: 75 Year
  Sex: Female

DRUGS (8)
  1. MINIRIN [Suspect]
     Indication: NOCTURIA
     Route: 048
     Dates: start: 20080514, end: 20080530
  2. DIGOXIN [Concomitant]
     Indication: ATRIAL FIBRILLATION
  3. AMLODIPINE [Concomitant]
  4. MICARDIS HCT [Concomitant]
     Indication: HYPERTENSION
     Route: 048
  5. RALOXIFENE HYDROCHLORIDE [Concomitant]
     Indication: OSTEOPOROSIS
     Route: 048
  6. MIRTAZAPINE [Concomitant]
     Route: 048
  7. AMITRIPTYLINE HCL [Concomitant]
     Indication: DEPRESSION
     Route: 048
  8. CLONAZEPAM [Concomitant]
     Route: 048

REACTIONS (2)
  - FALL [None]
  - HYPONATRAEMIA [None]
